FAERS Safety Report 20134233 (Version 1)
Quarter: 2021Q4

REPORT INFORMATION
  Report Type: Report from Study
  Country: BR (occurrence: BR)
  Receive Date: 20211201
  Receipt Date: 20211201
  Transmission Date: 20220303
  Serious: Yes (Other)
  Sender: FDA-Public Use
  Company Number: BR-NOVARTISPH-NVSC2021BR271108

PATIENT
  Age: 48 Year
  Sex: Female

DRUGS (3)
  1. ANASTROZOLE [Suspect]
     Active Substance: ANASTROZOLE
     Indication: Product used for unknown indication
     Dosage: 1 MG, QD (ONE 1MG TABLET PER DAY, CONTINUOUS USE)
     Route: 065
     Dates: start: 202007
  2. RIBOCICLIB [Suspect]
     Active Substance: RIBOCICLIB
     Indication: Product used for unknown indication
     Dosage: 200 MG (3 TABLETS A DAY FOR 21 DAYS AND PAUSE FOR 7 DAYS)
     Route: 065
  3. RIBOCICLIB [Suspect]
     Active Substance: RIBOCICLIB
     Dosage: 400 MG (400 MG A DAY FOR 21 DAYS AND PAUSE FOR ONE WEEK)
     Route: 065

REACTIONS (12)
  - Neutropenia [Unknown]
  - Metastases to nervous system [Unknown]
  - Intraductal proliferative breast lesion [Unknown]
  - Invasive breast carcinoma [Unknown]
  - Necrosis [Unknown]
  - Lymphocytic infiltration [Unknown]
  - Nausea [Unknown]
  - Vomiting [Unknown]
  - Dysphagia [Unknown]
  - Oropharyngeal plaque [Unknown]
  - Neutrophil count decreased [Unknown]
  - Breast mass [Unknown]

NARRATIVE: CASE EVENT DATE: 20201001
